FAERS Safety Report 16930345 (Version 3)
Quarter: 2020Q1

REPORT INFORMATION
  Report Type: Spontaneous
  Country: US (occurrence: US)
  Receive Date: 20191017
  Receipt Date: 20200116
  Transmission Date: 20200409
  Serious: Yes (Hospitalization)
  Sender: FDA-Public Use
  Company Number: US-PFIZER INC-2019443589

PATIENT
  Age: 62 Year
  Sex: Male
  Weight: 86.18 kg

DRUGS (2)
  1. TESTOSTERONE CIPIONATE [Suspect]
     Active Substance: TESTOSTERONE
     Indication: ANDROGEN DEFICIENCY
     Dosage: 1 ML, EVERY 2 WEEKS (200 MG/ML, 1ML INTO MUSCLE EVERY TWO WEEKS)
     Route: 030
  2. TESTOSTERONE CIPIONATE [Suspect]
     Active Substance: TESTOSTERONE
     Dosage: UNK, 1 TIME X2 WEEKS

REACTIONS (6)
  - Product physical issue [Unknown]
  - Product container seal issue [Unknown]
  - Chills [Not Recovered/Not Resolved]
  - Suspected counterfeit product [Unknown]
  - Headache [Recovering/Resolving]
  - Poor quality product administered [Unknown]

NARRATIVE: CASE EVENT DATE: 20191010
